FAERS Safety Report 4401266-4 (Version None)
Quarter: 2004Q3

REPORT INFORMATION
  Report Type: 
  Country: None (occurrence: None)
  Receive Date: 20040907
  Receipt Date: 20040128
  Transmission Date: 20050211
  Serious: Yes (Hospitalization)
  Sender: FDA-Public Use
  Company Number: US-BRISTOL-MYERS SQUIBB COMPANY-12491007

PATIENT
  Age: 75 Year
  Sex: Female
  Weight: 55 kg

DRUGS (8)
  1. COUMADIN [Suspect]
     Indication: MITRAL VALVE REPLACEMENT
     Dosage: PRESENT DOSE: 3 DAYS OF 5 MG OF AND THEN 2 DAYS OF 2.5 MG
     Route: 048
     Dates: start: 19981001
  2. PREVACID [Concomitant]
  3. DIGITEK [Concomitant]
     Dosage: DOSE: .125 MG EVERY OTHER DAY; TAKEN DIGOXIN SINCE 1970S.
     Dates: start: 20031201
  4. TRIAMTERENE AND HYDROCHLOROTHIAZIDE [Concomitant]
     Dosage: DOSE: 37.5/25
  5. CALCIUM [Concomitant]
  6. FOSAMAX [Concomitant]
  7. ZETIA [Concomitant]
  8. ZOCOR [Concomitant]

REACTIONS (4)
  - ALOPECIA [None]
  - HELICOBACTER INFECTION [None]
  - INTERNATIONAL NORMALISED RATIO ABNORMAL [None]
  - ULCER HAEMORRHAGE [None]
